FAERS Safety Report 7530972 (Version 4)
Quarter: 2013Q4

REPORT INFORMATION
  Report Type: Spontaneous
  Country: US (occurrence: US)
  Receive Date: 20100806
  Receipt Date: 20131031
  Transmission Date: 20140711
  Serious: Yes (Other)
  Sender: FDA-Public Use
  Company Number: US-009507513-1008USA00024

PATIENT
  Age: 10 Year
  Sex: Female

DRUGS (3)
  1. SINGULAIR [Suspect]
     Indication: BRONCHITIS
     Dosage: 5 MG, UNK
     Route: 048
     Dates: start: 2008, end: 20100705
  2. SINGULAIR [Suspect]
     Indication: ASTHMA
     Dosage: UNK MG, UNK
     Route: 048
  3. VITAMINS (UNSPECIFIED) [Concomitant]

REACTIONS (7)
  - Suicidal ideation [Not Recovered/Not Resolved]
  - Hallucination [Not Recovered/Not Resolved]
  - Nightmare [Not Recovered/Not Resolved]
  - Crying [Not Recovered/Not Resolved]
  - Depression [Not Recovered/Not Resolved]
  - Abnormal dreams [Not Recovered/Not Resolved]
  - Abdominal pain upper [Not Recovered/Not Resolved]
